FAERS Safety Report 20815670 (Version 14)
Quarter: 2023Q4

REPORT INFORMATION
  Report Type: Spontaneous
  Country: US (occurrence: US)
  Receive Date: 20220511
  Receipt Date: 20231212
  Transmission Date: 20240110
  Serious: No
  Sender: FDA-Public Use
  Company Number: US-PFIZER INC-202101410176

PATIENT
  Age: 53 Year
  Sex: Female
  Weight: 50.8 kg

DRUGS (2)
  1. PRISTIQ EXTENDED-RELEASE [Suspect]
     Active Substance: DESVENLAFAXINE SUCCINATE
     Dosage: 150 MG (1 100 MG AND 1 50 MG), QD (EVERY DAY)
  2. NEURONTIN [Concomitant]
     Active Substance: GABAPENTIN
     Dosage: 300 MG 2 BID

REACTIONS (3)
  - Memory impairment [Unknown]
  - Upper respiratory tract congestion [Unknown]
  - Head discomfort [Unknown]
